FAERS Safety Report 8451236-4 (Version None)
Quarter: 2012Q2

REPORT INFORMATION
  Report Type: 
  Country: None (occurrence: None)
  Receive Date: 20120620
  Receipt Date: 20120409
  Transmission Date: 20120825
  Serious: No
  Sender: FDA-Public Use
  Company Number: US-VERTEX PHARMACEUTICALS INC.-AE-2012-001249

PATIENT
  Sex: Male
  Weight: 98.064 kg

DRUGS (4)
  1. INCIVEK [Suspect]
     Indication: HEPATITIS C
     Route: 048
     Dates: start: 20120118, end: 20120124
  2. RIBAVIRIN [Concomitant]
     Indication: HEPATITIS C
     Route: 048
     Dates: start: 20120118, end: 20120124
  3. PEGINTERFERON ALFA-2A [Concomitant]
     Indication: HEPATITIS C
     Route: 058
     Dates: start: 20120118, end: 20120124
  4. UNSPECIFIED DIABETIC MEDICATIONS [Concomitant]
     Indication: DIABETES MELLITUS

REACTIONS (8)
  - DRY SKIN [None]
  - DYSGEUSIA [None]
  - ANAL PRURITUS [None]
  - DECREASED APPETITE [None]
  - FATIGUE [None]
  - DRUG INTOLERANCE [None]
  - NAUSEA [None]
  - ANORECTAL DISCOMFORT [None]
